FAERS Safety Report 10217176 (Version 1)
Quarter: 2014Q2

REPORT INFORMATION
  Report Type: Spontaneous
  Country: JP (occurrence: JP)
  Receive Date: 20140604
  Receipt Date: 20140604
  Transmission Date: 20141212
  Serious: Yes (Hospitalization, Other)
  Sender: FDA-Public Use
  Company Number: PHHY2014JP065753

PATIENT
  Age: 68 Year
  Sex: Male

DRUGS (3)
  1. EVEROLIMUS [Suspect]
     Indication: RENAL TRANSPLANT
     Dosage: 1.25 MG, DAILY
     Route: 048
  2. TACROLIMUS [Suspect]
     Indication: RENAL TRANSPLANT
     Dosage: 3 MG, DAILY
     Route: 048
  3. METHYLPREDNISOLONE [Suspect]
     Indication: RENAL TRANSPLANT
     Dosage: 4 MG, DAILY
     Route: 048

REACTIONS (5)
  - Bone marrow failure [Unknown]
  - Condition aggravated [Unknown]
  - Mouth ulceration [Recovered/Resolved]
  - Breath odour [Recovered/Resolved]
  - Eating disorder [Recovered/Resolved]
